FAERS Safety Report 4912014-3 (Version None)
Quarter: 2006Q1

REPORT INFORMATION
  Report Type: 
  Country: None (occurrence: None)
  Receive Date: 20060215
  Receipt Date: 20060202
  Transmission Date: 20060701
  Serious: Yes (Disabling, Other)
  Sender: FDA-Public Use
  Company Number: 2006CG00247

PATIENT
  Age: 80 Year
  Sex: Female

DRUGS (4)
  1. XYLOCAINE [Suspect]
     Indication: LOCAL ANAESTHESIA
     Route: 053
     Dates: start: 20050412, end: 20050412
  2. NAROPIN [Suspect]
     Indication: LOCAL ANAESTHESIA
     Route: 053
     Dates: start: 20050412, end: 20050412
  3. MARCAINE [Concomitant]
     Indication: LOCAL ANAESTHESIA
     Route: 053
     Dates: start: 20050101, end: 20050101
  4. XYLOCAINE [Concomitant]
     Route: 053
     Dates: start: 20050101, end: 20050101

REACTIONS (3)
  - CORNEAL OEDEMA [None]
  - CORNEAL OPACITY [None]
  - INTRAOCULAR PRESSURE INCREASED [None]
